FAERS Safety Report 9404441 (Version 1)
Quarter: 2013Q3

REPORT INFORMATION
  Report Type: Spontaneous
  Country: US (occurrence: US)
  Receive Date: 20130717
  Receipt Date: 20130717
  Transmission Date: 20140515
  Serious: No
  Sender: FDA-Public Use
  Company Number: US-PFIZER INC-2013206882

PATIENT
  Age: 57 Year
  Sex: Female

DRUGS (8)
  1. NEURONTIN [Suspect]
     Dosage: UNK
  2. TETANUS TOXOID [Suspect]
     Dosage: UNK
  3. NAPROSYN [Suspect]
     Dosage: UNK
  4. INDOCIN [Suspect]
     Dosage: UNK
  5. TYLOX [Suspect]
     Dosage: UNK
  6. LORTAB [Suspect]
     Dosage: UNK
  7. FIORICET [Suspect]
     Dosage: UNK
  8. MARGESIC [Suspect]
     Dosage: UNK

REACTIONS (1)
  - Drug hypersensitivity [Unknown]
